FAERS Safety Report 15429012 (Version 1)
Quarter: 2018Q3

REPORT INFORMATION
  Report Type: Spontaneous
  Country: US (occurrence: US)
  Receive Date: 20180919
  Receipt Date: 20180919
  Transmission Date: 20181010
  Serious: Yes (Life-Threatening, Hospitalization, Disabling)
  Sender: FDA-Public Use
  Company Number: None

PATIENT
  Age: 62 Year
  Sex: Female
  Weight: 64.41 kg

DRUGS (20)
  1. IRON [Concomitant]
     Active Substance: IRON
  2. VITAFUSION [Concomitant]
  3. FLEXORALL [Concomitant]
  4. CALCIUM [Concomitant]
     Active Substance: CALCIUM
  5. PRILOSEC [Concomitant]
     Active Substance: OMEPRAZOLE MAGNESIUM
  6. LEXAPRO [Concomitant]
     Active Substance: ESCITALOPRAM OXALATE
  7. CYTOMEL [Concomitant]
     Active Substance: LIOTHYRONINE SODIUM
  8. IMODIUM [Concomitant]
     Active Substance: LOPERAMIDE HYDROCHLORIDE
  9. DULCOLAX NOS [Concomitant]
     Active Substance: BISACODYL OR DOCUSATE SODIUM
  10. ZYRTEC [Concomitant]
     Active Substance: CETIRIZINE HYDROCHLORIDE
  11. ADDERALL [Concomitant]
     Active Substance: AMPHETAMINE ASPARTATE\AMPHETAMINE SULFATE\DEXTROAMPHETAMINE SACCHARATE\DEXTROAMPHETAMINE SULFATE
  12. MULTIVITAMIN [Concomitant]
     Active Substance: VITAMINS
  13. MEGARED FISH OIL [Concomitant]
  14. VITAMIN D3 [Concomitant]
     Active Substance: CHOLECALCIFEROL
  15. PERCOCET [Concomitant]
     Active Substance: ACETAMINOPHEN\OXYCODONE HYDROCHLORIDE
  16. VALIUM [Concomitant]
     Active Substance: DIAZEPAM
  17. SYNTHROID [Concomitant]
     Active Substance: LEVOTHYROXINE SODIUM
  18. TRAZODONE [Concomitant]
     Active Substance: TRAZODONE HYDROCHLORIDE
  19. FORTEO [Suspect]
     Active Substance: TERIPARATIDE
  20. VIVELLE [Concomitant]
     Active Substance: ESTRADIOL

REACTIONS (22)
  - Memory impairment [None]
  - Rectal discharge [None]
  - Vision blurred [None]
  - Renal failure [None]
  - Alopecia [None]
  - Accidental overdose [None]
  - Blood iron decreased [None]
  - Blood calcium decreased [None]
  - Arthralgia [None]
  - Device physical property issue [None]
  - Asthenia [None]
  - Peripheral swelling [None]
  - Abdominal discomfort [None]
  - Headache [None]
  - Small intestinal obstruction [None]
  - Vitamin D decreased [None]
  - Device malfunction [None]
  - Feeling abnormal [None]
  - Influenza like illness [None]
  - Coma [None]
  - Sepsis [None]
  - Protein albumin ratio decreased [None]

NARRATIVE: CASE EVENT DATE: 20171224
